FAERS Safety Report 10273070 (Version 1)
Quarter: 2014Q1

REPORT INFORMATION
  Report Type: Spontaneous
  Country: US (occurrence: None)
  Receive Date: 20140306
  Receipt Date: 20140306
  Transmission Date: 20141002
  Serious: Yes (Hospitalization, Other)
  Sender: FDA-Public Use
  Company Number: 163-21880-13083470

PATIENT
  Age: 86 Year
  Sex: Female
  Weight: 58.06 kg

DRUGS (10)
  1. REVLIMID (LENALIDOMIDE) (10 MILLIGRAM, CAPSULES) [Suspect]
     Indication: PLASMA CELL MYELOMA
     Route: 048
     Dates: start: 20130725, end: 20130823
  2. DEXAMETHASONE (DEXAMETHASONE) (UNKNOWN) [Concomitant]
  3. DIGOXIN (DIGOXIN) (TABLETS) [Concomitant]
  4. METOPROLOL SUCCINATE (METOPROLOL SUCCINATE) (UNKNOWN) [Concomitant]
  5. HYDROCHLOROTHIAZIDE (HYDROCHLOROTHIAZIDE) (UNKNOWN) [Concomitant]
  6. WARFARIN SODIUM (WARFARIN SODIUM) (UNKNOWN) [Concomitant]
  7. POTASSIUM (POTASSIUM) (TABLETS) [Concomitant]
  8. DILTIAZEM (DILTIAZEM) (UNKNOWN) (DILTIAZEM) [Concomitant]
  9. BLOOD (BLOOD TRANSFUSION, AUXILIARY PRODUCTS) (UNKNOWN) [Concomitant]
  10. COUMADIN (WARFARIN SODIUM) (UNKNOWN) [Concomitant]

REACTIONS (11)
  - Red blood cell count decreased [None]
  - White blood cell count decreased [None]
  - Fluid retention [None]
  - Fatigue [None]
  - Anaemia [None]
  - Blood potassium decreased [None]
  - Somnolence [None]
  - Decreased appetite [None]
  - Lethargy [None]
  - Hypocalcaemia [None]
  - Plasma cell myeloma [None]
